FAERS Safety Report 8222595-2 (Version None)
Quarter: 2012Q1

REPORT INFORMATION
  Report Type: 
  Country: None (occurrence: None)
  Receive Date: 20120320
  Receipt Date: 20120312
  Transmission Date: 20120608
  Serious: Yes (Disabling, Other)
  Sender: FDA-Public Use
  Company Number: US-ABBOTT-12P-163-0914376-00

PATIENT
  Sex: Female

DRUGS (1)
  1. HUMIRA [Suspect]
     Indication: PSORIATIC ARTHROPATHY
     Dates: start: 20080101, end: 20100101

REACTIONS (11)
  - MULTIPLE SCLEROSIS [None]
  - FATIGUE [None]
  - UNEVALUABLE EVENT [None]
  - MEMORY IMPAIRMENT [None]
  - INJURY [None]
  - DIZZINESS [None]
  - ACTIVITIES OF DAILY LIVING IMPAIRED [None]
  - APHASIA [None]
  - MUSCULAR WEAKNESS [None]
  - PARALYSIS [None]
  - ECONOMIC PROBLEM [None]
